FAERS Safety Report 9982318 (Version 1)
Quarter: 2014Q1

REPORT INFORMATION
  Report Type: Report from Study
  Country: US (occurrence: US)
  Receive Date: 20140307
  Receipt Date: 20140307
  Transmission Date: 20141002
  Serious: No
  Sender: FDA-Public Use
  Company Number: US-ABBVIE-13P-163-1178027-00

PATIENT
  Sex: Female

DRUGS (12)
  1. HUMIRA [Suspect]
     Indication: RHEUMATOID ARTHRITIS
     Dates: start: 201011
  2. RESTASIS [Concomitant]
     Indication: SJOGREN^S SYNDROME
     Dosage: DROP, TO BOTH EYES
  3. ALPRAZOLAM [Concomitant]
     Indication: INSOMNIA
  4. CRESTOR [Concomitant]
     Indication: BLOOD CHOLESTEROL
     Dosage: AT BEDTIME
  5. PLAVIX [Concomitant]
     Indication: CORONARY ARTERIAL STENT INSERTION
  6. RAMIPRIL [Concomitant]
     Indication: BLOOD PRESSURE
  7. FOLIC ACID [Concomitant]
     Indication: RHEUMATOID ARTHRITIS
  8. METHOTREXATE [Concomitant]
     Indication: RHEUMATOID ARTHRITIS
     Dosage: PILLS
  9. PANTOPRAZOLE [Concomitant]
     Indication: GASTROOESOPHAGEAL REFLUX DISEASE
  10. POTASSIUM CL [Concomitant]
     Indication: BLOOD POTASSIUM ABNORMAL
     Dosage: 1 IN AM AND 1 IN PM
  11. VITAMIN D3 [Concomitant]
     Indication: BONE DISORDER
  12. CENTRUM SILVER [Concomitant]
     Indication: VITAMIN SUPPLEMENTATION
     Dosage: DAILY

REACTIONS (4)
  - Cough [Not Recovered/Not Resolved]
  - Viral infection [Unknown]
  - Pyrexia [Unknown]
  - Lymphadenopathy [Unknown]
